FAERS Safety Report 8839181 (Version 2)
Quarter: 2012Q4

REPORT INFORMATION
  Report Type: 
  Country: GB (occurrence: GB)
  Receive Date: 20121015
  Receipt Date: 20121023
  Transmission Date: 20130627
  Serious: Yes (Death, Congenital Anomaly)
  Sender: FDA-Public Use
  Company Number: GB-GLENMARK GENERICS INC.-2012GMK003853

PATIENT

DRUGS (4)
  1. TOPIRAMATE [Suspect]
     Indication: EPILEPSY
     Dosage: UNK
     Route: 064
  2. ACETAZOLAMIDE [Suspect]
     Indication: EPILEPSY
     Dosage: UNK
     Route: 064
  3. TEGRETOL [Suspect]
     Indication: EPILEPSY
     Dosage: 800 mg, qd
     Route: 064
  4. ZONISAMIDE [Suspect]
     Indication: EPILEPSY
     Dosage: UNK
     Route: 064

REACTIONS (3)
  - Death neonatal [Fatal]
  - Congenital intestinal malformation [Unknown]
  - Foetal exposure during pregnancy [Recovered/Resolved]
